FAERS Safety Report 4955217-4 (Version None)
Quarter: 2006Q1

REPORT INFORMATION
  Report Type: 
  Country: None (occurrence: None)
  Receive Date: 20060322
  Receipt Date: 20060313
  Transmission Date: 20060701
  Serious: Yes (Hospitalization, Other)
  Sender: FDA-Public Use
  Company Number: 2006035072

PATIENT
  Age: 71 Year
  Sex: Female
  Weight: 74.3899 kg

DRUGS (8)
  1. BEXTRA [Suspect]
     Indication: ARTHRITIS
     Dosage: 20 MG (20 MG, 1 IN 1 D),
     Dates: end: 20050201
  2. SYNTHROID [Concomitant]
  3. METOPROLOL (METOPROLOL) [Concomitant]
  4. ZOCOR [Concomitant]
  5. PREVACID [Concomitant]
  6. NITROGLYCERIN [Concomitant]
  7. ZYRTEC [Concomitant]
  8. NEXIUM [Concomitant]

REACTIONS (5)
  - MALAISE [None]
  - ROAD TRAFFIC ACCIDENT [None]
  - SPINAL FRACTURE [None]
  - VOMITING [None]
  - WEIGHT DECREASED [None]
